FAERS Safety Report 20792713 (Version 2)
Quarter: 2022Q4

REPORT INFORMATION
  Report Type: Other
  Country: KR (occurrence: None)
  Receive Date: 20220506
  Receipt Date: 20221226
  Transmission Date: 20230112
  Serious: Yes (Other)
  Sender: FDA-Public Use
  Company Number: KR-ROCHE-2998117

PATIENT
  Age: 65 Year
  Sex: Male
  Weight: 68.9 kg

DRUGS (27)
  1. ATEZOLIZUMAB [Suspect]
     Active Substance: ATEZOLIZUMAB
     Indication: Hepatocellular carcinoma
     Route: 041
     Dates: start: 20211112
  2. ATEZOLIZUMAB [Suspect]
     Active Substance: ATEZOLIZUMAB
     Route: 041
     Dates: start: 20211203
  3. ATEZOLIZUMAB [Suspect]
     Active Substance: ATEZOLIZUMAB
     Route: 041
     Dates: start: 20211228
  4. ATEZOLIZUMAB [Suspect]
     Active Substance: ATEZOLIZUMAB
     Route: 041
     Dates: start: 20220119
  5. ATEZOLIZUMAB [Suspect]
     Active Substance: ATEZOLIZUMAB
     Route: 041
     Dates: start: 20220209
  6. BEVACIZUMAB [Suspect]
     Active Substance: BEVACIZUMAB
     Indication: Hepatocellular carcinoma
     Route: 042
     Dates: start: 20211112
  7. BEVACIZUMAB [Suspect]
     Active Substance: BEVACIZUMAB
     Route: 042
     Dates: start: 20211203
  8. BEVACIZUMAB [Suspect]
     Active Substance: BEVACIZUMAB
     Route: 042
     Dates: start: 20211228
  9. BEVACIZUMAB [Suspect]
     Active Substance: BEVACIZUMAB
     Route: 042
     Dates: start: 20220209
  10. DIETARY SUPPLEMENT\HERBALS\MILK THISTLE [Concomitant]
     Active Substance: DIETARY SUPPLEMENT\HERBALS\MILK THISTLE
     Indication: Hepatic cirrhosis
  11. URSODIOL [Concomitant]
     Active Substance: URSODIOL
  12. URSODIOL [Concomitant]
     Active Substance: URSODIOL
     Dates: start: 20220118
  13. CARVEDILOL [Concomitant]
     Active Substance: CARVEDILOL
     Indication: Varices oesophageal
     Dates: start: 20210525
  14. PENNEL (SOUTH KOREA) [Concomitant]
     Indication: Hepatitis B
     Dates: start: 20211119
  15. CAVIR [Concomitant]
     Indication: Hepatitis B
     Dates: start: 20211119, end: 20211119
  16. LASIX [Concomitant]
     Active Substance: FUROSEMIDE
     Indication: Ascites
     Route: 065
     Dates: start: 20211203, end: 20220119
  17. LOSARTAN POTASSIUM [Concomitant]
     Active Substance: LOSARTAN POTASSIUM
     Indication: Hypertension
     Dates: start: 20220118
  18. BARACLUDE [Concomitant]
     Active Substance: ENTECAVIR
     Indication: Hepatitis B
     Dates: start: 20211202
  19. FURIX (SOUTH KOREA) [Concomitant]
     Indication: Ascites
     Dates: start: 20220118
  20. ALDACTONE [Concomitant]
     Active Substance: SPIRONOLACTONE
     Indication: Ascites
     Dates: start: 20220118
  21. GODEX [ADENINE HYDROCHLORIDE;CARNITINE OROTATE;CYANOCOBALAMIN;LIVER;PY [Concomitant]
     Dates: start: 20220209
  22. CETIZAL (SOUTH KOREA) [Concomitant]
     Indication: Urticaria
     Dates: start: 20220118
  23. DULACKHAN [Concomitant]
     Indication: Constipation
     Dates: start: 20220902
  24. PREDNISOLONE [Concomitant]
     Active Substance: PREDNISOLONE
     Indication: Urticaria
     Dates: start: 20220902
  25. LACTICARE ZEMAGIS [Concomitant]
     Indication: Urticaria
     Dates: start: 20220902
  26. SUSPEN 8 HOURS ER [Concomitant]
     Indication: Cancer pain
     Dates: start: 20220222
  27. LANSOPRAZOLE [Concomitant]
     Active Substance: LANSOPRAZOLE
     Indication: Varices oesophageal
     Dates: start: 20220404

REACTIONS (6)
  - Ascites [Recovering/Resolving]
  - Hypoalbuminaemia [Recovering/Resolving]
  - Constipation [Recovering/Resolving]
  - Hypertension [Recovering/Resolving]
  - Urticaria [Recovering/Resolving]
  - Proteinuria [Recovered/Resolved]

NARRATIVE: CASE EVENT DATE: 20211203
